FAERS Safety Report 8024666-2 (Version None)
Quarter: 2012Q1

REPORT INFORMATION
  Report Type: 
  Country: None (occurrence: None)
  Receive Date: 20120105
  Receipt Date: 20111221
  Transmission Date: 20120608
  Serious: Yes (Hospitalization, Other)
  Sender: FDA-Public Use
  Company Number: ES-CELGENEUS-144-50794-11113109

PATIENT
  Sex: Male
  Weight: 69 kg

DRUGS (8)
  1. OMACOR [Concomitant]
     Route: 065
  2. VIDAZA [Suspect]
     Dosage: 130 MILLIGRAM
     Route: 065
     Dates: start: 20110325, end: 20110505
  3. ATACAND [Concomitant]
     Route: 065
  4. DUTASTERIDE/TAMSULOSIN HYDROCHLORIDE [Concomitant]
     Route: 065
  5. LANSOPRAZOLE [Concomitant]
     Route: 065
  6. INDAPAMIDE [Concomitant]
     Route: 065
  7. RANITRAL [Concomitant]
     Route: 065
  8. ATENOLOL [Concomitant]
     Route: 065

REACTIONS (2)
  - FEBRILE NEUTROPENIA [None]
  - PULMONARY TUBERCULOSIS [None]
